FAERS Safety Report 14628107 (Version 1)
Quarter: 2018Q1

REPORT INFORMATION
  Report Type: Spontaneous
  Country: US (occurrence: US)
  Receive Date: 20180312
  Receipt Date: 20180312
  Transmission Date: 20180509
  Serious: No
  Sender: FDA-Public Use
  Company Number: US-ALLERGAN-1718681US

PATIENT
  Sex: Female

DRUGS (2)
  1. ESTRACE [Suspect]
     Active Substance: ESTRADIOL
     Indication: PRODUCT USED FOR UNKNOWN INDICATION
     Dosage: 1 G, TWICE WEEKLY
     Route: 067
  2. ESTRACE [Suspect]
     Active Substance: ESTRADIOL
     Dosage: 1 G, QHS, FOR 2 WEEKS
     Route: 067

REACTIONS (2)
  - Malabsorption from application site [Unknown]
  - Drug ineffective [Unknown]
